FAERS Safety Report 4575678-2 (Version None)
Quarter: 2005Q1

REPORT INFORMATION
  Report Type: 
  Country: None (occurrence: None)
  Receive Date: 20050128
  Receipt Date: 20050128
  Transmission Date: 20050727
  Serious: No
  Sender: FDA-Public Use
  Company Number: None

PATIENT
  Sex: Male
  Weight: 113.3993 kg

DRUGS (7)
  1. LEVOTHROXINE [Suspect]
     Dosage: 125 MG DAILY
  2. ZOCOR [Concomitant]
  3. TEGRETOL [Concomitant]
  4. NORVASC [Concomitant]
  5. ALPRAZOLAM [Concomitant]
  6. DARVOCET [Concomitant]
  7. DITROPAN [Concomitant]

REACTIONS (1)
  - UNEVALUABLE EVENT [None]
